FAERS Safety Report 20437312 (Version 1)
Quarter: 2022Q1

REPORT INFORMATION
  Report Type: Report from Study
  Country: ES (occurrence: ES)
  Receive Date: 20220207
  Receipt Date: 20220207
  Transmission Date: 20220423
  Serious: Yes (Other)
  Sender: FDA-Public Use
  Company Number: ES-SA-SAC20220201000034

PATIENT

DRUGS (2)
  1. PRALUENT [Suspect]
     Active Substance: ALIROCUMAB
     Indication: Product used for unknown indication
     Dosage: UNK
     Route: 065
     Dates: start: 20211111, end: 20211130
  2. REPATHA [Concomitant]
     Active Substance: EVOLOCUMAB
     Dosage: UNK

REACTIONS (4)
  - Myocardial infarction [Unknown]
  - Peripheral arterial occlusive disease [Unknown]
  - Low density lipoprotein increased [Unknown]
  - Drug intolerance [Unknown]

NARRATIVE: CASE EVENT DATE: 20211101
